FAERS Safety Report 20068293 (Version 2)
Quarter: 2022Q1

REPORT INFORMATION
  Report Type: Report from Study
  Country: ES (occurrence: None)
  Receive Date: 20211115
  Receipt Date: 20220111
  Transmission Date: 20220424
  Serious: Yes (Hospitalization)
  Sender: FDA-Public Use
  Company Number: ES-ROCHE-2955301

PATIENT
  Age: 77 Year
  Sex: Male

DRUGS (2)
  1. CABOZANTINIB [Suspect]
     Active Substance: CABOZANTINIB
     Indication: Renal cell carcinoma
     Dosage: ON 05/NOV/2021, PATIENT RECEIVED LAST DOSE OF CABOZANTINIB ADMIN PRIOR AE IS 60 MG (THREE 20-MG TABL
     Route: 048
  2. ATEZOLIZUMAB [Suspect]
     Active Substance: ATEZOLIZUMAB
     Indication: Renal cell carcinoma
     Dosage: ON 22/OCT/2021, PATIENT RECEIVED LAST DOSE OF ATEZOLIZUMAB ADMIN PRIOR AE IS 1200 MG.
     Route: 042

REACTIONS (1)
  - Toxic encephalopathy [Not Recovered/Not Resolved]

NARRATIVE: CASE EVENT DATE: 20211106
